FAERS Safety Report 23647222 (Version 1)
Quarter: 2024Q1

REPORT INFORMATION
  Report Type: Other
  Country: IN (occurrence: None)
  Receive Date: 20240319
  Receipt Date: 20240319
  Transmission Date: 20240410
  Serious: Yes (Other)
  Sender: FDA-Public Use
  Company Number: IN-ROCHE-3525466

PATIENT
  Age: 53 Year
  Sex: Male

DRUGS (1)
  1. RITUXIMAB [Suspect]
     Active Substance: RITUXIMAB
     Indication: Non-Hodgkin^s lymphoma
     Route: 041
     Dates: start: 20230208

REACTIONS (1)
  - Non-Hodgkin^s lymphoma recurrent [Unknown]
